FAERS Safety Report 24896506 (Version 1)
Quarter: 2025Q1

REPORT INFORMATION
  Report Type: Spontaneous
  Country: US (occurrence: US)
  Receive Date: 20250128
  Receipt Date: 20250128
  Transmission Date: 20250409
  Serious: No
  Sender: SANOFI AVENTIS
  Company Number: US-SA-2024SA372241

PATIENT
  Age: 13 Year
  Sex: Female
  Weight: 57.91 kg

DRUGS (5)
  1. DUPIXENT [Suspect]
     Active Substance: DUPILUMAB
     Indication: Eosinophilic oesophagitis
     Dosage: 300 MG, QW
     Route: 058
     Dates: start: 20241117, end: 20241124
  2. SUCRALFATE [Concomitant]
     Active Substance: SUCRALFATE
  3. OMEPRAZOLE [Concomitant]
     Active Substance: OMEPRAZOLE
  4. MIDODRINE [Concomitant]
     Active Substance: MIDODRINE
  5. ATENOLOL [Concomitant]
     Active Substance: ATENOLOL

REACTIONS (4)
  - Migraine [Unknown]
  - Throat irritation [Unknown]
  - Lymphadenopathy [Recovered/Resolved]
  - Injection site swelling [Recovered/Resolved]

NARRATIVE: CASE EVENT DATE: 20241117
